FAERS Safety Report 8572117-1 (Version None)
Quarter: 2012Q3

REPORT INFORMATION
  Report Type: 
  Country: None (occurrence: None)
  Receive Date: 20120806
  Receipt Date: 20120731
  Transmission Date: 20120928
  Serious: Yes (Hospitalization)
  Sender: FDA-Public Use
  Company Number: PHEH2012US015138

PATIENT
  Sex: Female

DRUGS (6)
  1. VOLTAREN [Suspect]
     Indication: BACK PAIN
     Dosage: UNK
     Dates: end: 20090101
  2. ANTIINFLAMMATORY [Suspect]
     Indication: BONE PAIN
     Dosage: UNK
     Dates: end: 20090101
  3. TENORMIN [Concomitant]
     Indication: BLOOD PRESSURE
  4. DICLOFENAC SODIUM [Suspect]
     Indication: BACK PAIN
     Dosage: UNK
     Dates: end: 20090101
  5. LODINE [Suspect]
     Dosage: UNK
     Dates: end: 20090101
  6. DIAZEPAM [Concomitant]
     Indication: MUSCLE RELAXANT THERAPY

REACTIONS (1)
  - PULMONARY HAEMORRHAGE [None]
